FAERS Safety Report 12678011 (Version 3)
Quarter: 2018Q4

REPORT INFORMATION
  Report Type: Spontaneous
  Country: JP (occurrence: JP)
  Receive Date: 20160823
  Receipt Date: 20181126
  Transmission Date: 20190204
  Serious: Yes (Life-Threatening, Hospitalization)
  Sender: FDA-Public Use
  Company Number: JP-PFIZER INC-2016392599

PATIENT
  Age: 75 Year
  Sex: Female

DRUGS (2)
  1. PREGABALIN. [Suspect]
     Active Substance: PREGABALIN
     Indication: BACK PAIN
     Dosage: 75 MG, 2X/DAY
  2. AZITHROMYCIN ANHYDROUS. [Interacting]
     Active Substance: AZITHROMYCIN ANHYDROUS
     Indication: BRONCHITIS
     Dosage: 500 MG, SINGLE

REACTIONS (2)
  - Rhabdomyolysis [Recovering/Resolving]
  - Drug interaction [Recovering/Resolving]
